FAERS Safety Report 20076011 (Version 1)
Quarter: 2021Q4

REPORT INFORMATION
  Report Type: Spontaneous
  Country: BR (occurrence: BR)
  Receive Date: 20211116
  Receipt Date: 20211116
  Transmission Date: 20220304
  Serious: Yes (Other)
  Sender: FDA-Public Use
  Company Number: BR-HBP-2021BR023866

PATIENT
  Age: 77 Year
  Sex: Male

DRUGS (3)
  1. PALONOSETRON HYDROCHLORIDE [Suspect]
     Active Substance: PALONOSETRON HYDROCHLORIDE
     Indication: Hepatic cancer
     Dosage: 0.25 MILLIGRAM, QD
     Route: 065
  2. LEUCOVORIN CALCIUM [Suspect]
     Active Substance: LEUCOVORIN CALCIUM
     Indication: Hepatic cancer
     Dosage: 970 MILLIGRAM, QD
     Route: 065
  3. OXALIPLATIN [Suspect]
     Active Substance: OXALIPLATIN
     Indication: Hepatic cancer
     Dosage: 206.13 MILLIGRAM, QD
     Route: 065

REACTIONS (5)
  - Hepatic cancer [Unknown]
  - Fatigue [Unknown]
  - Drug interaction [Unknown]
  - International normalised ratio abnormal [Unknown]
  - Off label use [Unknown]
